FAERS Safety Report 9331918 (Version 1)
Quarter: 2013Q2

REPORT INFORMATION
  Report Type: Other
  Country: GB (occurrence: GB)
  Receive Date: 20130605
  Receipt Date: 20130605
  Transmission Date: 20140414
  Serious: Yes (Life-Threatening, Hospitalization)
  Sender: FDA-Public Use
  Company Number: GB-ACTAVIS-2013-10083

PATIENT
  Age: 41 Year
  Sex: Male

DRUGS (8)
  1. ACETAMINOPHEN [Suspect]
     Indication: PRODUCT USED FOR UNKNOWN INDICATION
     Dosage: 200 DF, UNK
     Route: 065
     Dates: start: 20121223
  2. CLOZARIL [Suspect]
     Indication: SCHIZOPHRENIA
     Dosage: 150 MG, BID
     Route: 048
  3. CLOZARIL [Suspect]
     Dosage: UNK, UNKNOWN
     Route: 065
     Dates: start: 20070126, end: 20121212
  4. SERETIDE [Concomitant]
     Indication: ASTHMA
     Dosage: 2 DF, DAILY
     Route: 065
  5. TOPIRAMATE [Concomitant]
     Indication: PRODUCT USED FOR UNKNOWN INDICATION
  6. VENLAFAXINE [Concomitant]
     Indication: DEPRESSION
     Dosage: 150 MG, UNKNOWN
     Route: 065
  7. VENLAFAXINE [Concomitant]
     Dosage: 112.5 UNK, UNK
  8. RISPERIDONE [Concomitant]
     Indication: PSYCHOTIC DISORDER
     Dosage: 3 MG, UNK
     Route: 065

REACTIONS (5)
  - Liver injury [Unknown]
  - Overdose [Recovering/Resolving]
  - Psychotic disorder [Unknown]
  - Renal disorder [Unknown]
  - Self injurious behaviour [Unknown]
